FAERS Safety Report 6868608-1 (Version None)
Quarter: 2010Q3

REPORT INFORMATION
  Report Type: 
  Country: None (occurrence: None)
  Receive Date: 20100721
  Receipt Date: 20100721
  Transmission Date: 20110219
  Serious: Yes (Hospitalization)
  Sender: FDA-Public Use
  Company Number: None

PATIENT
  Age: 65 Year
  Sex: Female

DRUGS (3)
  1. VELCADE [Suspect]
     Indication: MULTIPLE MYELOMA
  2. CYTOXAN [Suspect]
  3. DEXAMETHASONE [Suspect]

REACTIONS (2)
  - ABDOMINAL PAIN UPPER [None]
  - ADHESION [None]
